FAERS Safety Report 8566922-5 (Version None)
Quarter: 2012Q3

REPORT INFORMATION
  Report Type: 
  Country: None (occurrence: None)
  Receive Date: 20120803
  Receipt Date: 20110801
  Transmission Date: 20120928
  Serious: No
  Sender: FDA-Public Use
  Company Number: US-ABBOTT-11P-163-0843866-00

PATIENT
  Sex: Female
  Weight: 66.738 kg

DRUGS (9)
  1. MULTI-VITAMIN [Concomitant]
     Indication: VITAMIN SUPPLEMENTATION
  2. LOSARTAN POTASSIUM [Concomitant]
     Indication: HYPERTENSION
  3. NIASPAN [Suspect]
     Indication: BLOOD TRIGLYCERIDES INCREASED
     Dates: start: 20110615
  4. AMLODIPINE [Concomitant]
     Indication: HYPERTENSION
  5. FENOFIBRATE [Concomitant]
     Indication: BLOOD TRIGLYCERIDES INCREASED
  6. CRESTOR [Concomitant]
     Indication: BLOOD TRIGLYCERIDES INCREASED
  7. ASPIRIN [Concomitant]
     Indication: PRODUCT USED FOR UNKNOWN INDICATION
  8. VITAMIN D [Concomitant]
     Indication: VITAMIN SUPPLEMENTATION
  9. LOVASA [Concomitant]
     Indication: BLOOD TRIGLYCERIDES INCREASED

REACTIONS (4)
  - ABNORMAL DREAMS [None]
  - FLUSHING [None]
  - MIDDLE INSOMNIA [None]
  - GASTROOESOPHAGEAL REFLUX DISEASE [None]
